FAERS Safety Report 9486161 (Version 1)
Quarter: 2013Q3

REPORT INFORMATION
  Report Type: Spontaneous
  Country: US (occurrence: US)
  Receive Date: 20130829
  Receipt Date: 20130829
  Transmission Date: 20140515
  Serious: No
  Sender: FDA-Public Use
  Company Number: US-TEVA-428770USA

PATIENT
  Sex: Female

DRUGS (2)
  1. ACTIQ [Suspect]
     Indication: PAIN
     Route: 048
     Dates: start: 201103
  2. OXYGEN [Concomitant]

REACTIONS (1)
  - Off label use [Not Recovered/Not Resolved]
